FAERS Safety Report 25751999 (Version 1)
Quarter: 2025Q3

REPORT INFORMATION
  Report Type: Spontaneous
  Country: EU (occurrence: EU)
  Receive Date: 20250902
  Receipt Date: 20250902
  Transmission Date: 20251021
  Serious: Yes (Hospitalization)
  Sender: ALEXION PHARMACEUTICALS
  Company Number: 2025010200-000

PATIENT
  Age: 30 Year
  Sex: Female
  Weight: 42 kg

DRUGS (5)
  1. OMEPRAZOLE [Suspect]
     Active Substance: OMEPRAZOLE
  2. VENLAFAXINE HYDROCHLORIDE [Suspect]
     Active Substance: VENLAFAXINE HYDROCHLORIDE
  3. DIENOGEST [Concomitant]
     Active Substance: DIENOGEST
  4. OXAZEPAM [Concomitant]
     Active Substance: OXAZEPAM
  5. METOPIMAZINE [Concomitant]
     Active Substance: METOPIMAZINE

REACTIONS (4)
  - Hyponatraemia [Recovering/Resolving]
  - Inappropriate antidiuretic hormone secretion [Recovering/Resolving]
  - Migraine with aura [Unknown]
  - Malnutrition [Recovering/Resolving]

NARRATIVE: CASE EVENT DATE: 20250801
